FAERS Safety Report 10195030 (Version 2)
Quarter: 2014Q2

REPORT INFORMATION
  Report Type: Report from Study
  Country: FR (occurrence: FR)
  Receive Date: 20140526
  Receipt Date: 20140612
  Transmission Date: 20141212
  Serious: Yes (Hospitalization)
  Sender: FDA-Public Use
  Company Number: PHHY2014FR063236

PATIENT
  Age: 67 Year
  Sex: Male

DRUGS (3)
  1. NEORAL [Suspect]
     Dosage: 100 MG, BID
     Route: 048
     Dates: start: 20110128
  2. CORTANCYL [Suspect]
     Dates: start: 20110801
  3. MYCOPHENOLATE [Suspect]
     Dates: start: 20110126

REACTIONS (1)
  - Lymphoedema [Unknown]
